FAERS Safety Report 6903390-0 (Version None)
Quarter: 2010Q3

REPORT INFORMATION
  Report Type: 
  Country: None (occurrence: None)
  Receive Date: 20100803
  Receipt Date: 20080929
  Transmission Date: 20110219
  Serious: No
  Sender: FDA-Public Use
  Company Number: US-PFIZER INC-2008030560

PATIENT
  Sex: Female
  Weight: 72.6 kg

DRUGS (5)
  1. LYRICA [Suspect]
     Indication: FIBROMYALGIA
     Dates: start: 20080327
  2. AMITRIPTYLINE HYDROCHLORIDE [Concomitant]
     Dates: end: 20080327
  3. GABAPENTIN [Concomitant]
     Dates: end: 20080327
  4. CYCLOBENZAPRINE [Concomitant]
     Dates: end: 20080327
  5. STOOL SOFTENER [Concomitant]
     Dates: end: 20080327

REACTIONS (4)
  - ABDOMINAL PAIN UPPER [None]
  - DRUG DOSE OMISSION [None]
  - FIBROMYALGIA [None]
  - PYREXIA [None]
